FAERS Safety Report 10685181 (Version 11)
Quarter: 2019Q2

REPORT INFORMATION
  Report Type: Spontaneous
  Country: US (occurrence: US)
  Receive Date: 20141231
  Receipt Date: 20190624
  Transmission Date: 20190711
  Serious: Yes (Other)
  Sender: FDA-Public Use
  Company Number: US-PFIZER INC-2014357524

PATIENT
  Age: 78 Year
  Sex: Female
  Weight: 47.17 kg

DRUGS (22)
  1. CALCITONIN [Concomitant]
     Active Substance: CALCITONIN
     Dosage: UNK (200 UNIT/ACT)
     Route: 045
     Dates: start: 20111028
  2. VITAMIN D [Concomitant]
     Active Substance: VITAMIN D NOS
     Dosage: 400 IU, UNK
     Dates: start: 20111219
  3. AMLACTIN [Concomitant]
     Active Substance: AMMONIUM LACTATE
     Dosage: UNK
     Dates: start: 20141113
  4. FLONASE [Concomitant]
     Active Substance: FLUTICASONE PROPIONATE
     Indication: HYPERSENSITIVITY
     Dosage: 50 UG, UNK
  5. LETAIRIS [Concomitant]
     Active Substance: AMBRISENTAN
     Indication: PULMONARY HYPERTENSION
     Dosage: 5 MG, 1X/DAY
     Route: 048
     Dates: start: 20190531
  6. PROAIR HFA [Concomitant]
     Active Substance: ALBUTEROL SULFATE
     Dosage: 2 PUFFS EVERY 4 TO 6 HRS, AS NEEDED
     Route: 055
     Dates: start: 20130822
  7. SYMBICORT [Concomitant]
     Active Substance: BUDESONIDE\FORMOTEROL FUMARATE DIHYDRATE
     Indication: HYPERSENSITIVITY
     Dosage: 2 PUFFS TWICE DAILY RINSE MOUTH AFTER USE
     Route: 055
     Dates: start: 20141013
  8. ASPIRIN. [Concomitant]
     Active Substance: ASPIRIN
     Dosage: 81 MG, DAILY
     Route: 048
     Dates: start: 20121206
  9. CLONAZEPAM. [Concomitant]
     Active Substance: CLONAZEPAM
     Dosage: 0.25 MG, UNK
     Route: 048
     Dates: start: 20141113
  10. QVAR [Concomitant]
     Active Substance: BECLOMETHASONE DIPROPIONATE
     Dosage: INHALE 2 PUFFS TWICE DAILY; RINSE MOUTH AFTER USE
     Route: 055
     Dates: start: 20150724
  11. LIDOCAINE HCL [Concomitant]
     Active Substance: LIDOCAINE HYDROCHLORIDE
     Dosage: UNK (2% EXTERNAL GEL)
     Dates: start: 20120116
  12. VITAMIN E [Concomitant]
     Active Substance: .ALPHA.-TOCOPHEROL
     Dosage: 400 IU, UNK
     Route: 048
     Dates: start: 20111219
  13. VOLTAREN [Concomitant]
     Active Substance: DICLOFENAC SODIUM
     Dosage: UNK
     Dates: start: 20160503
  14. REVATIO [Suspect]
     Active Substance: SILDENAFIL CITRATE
     Indication: PULMONARY ARTERIAL HYPERTENSION
     Dosage: 20 MG, 3X/DAY (EVERY 8HR) WITH WATER
     Route: 048
     Dates: start: 20110201
  15. FOLIC ACID. [Concomitant]
     Active Substance: FOLIC ACID
     Dosage: 1 MG, UNK
     Route: 048
     Dates: start: 20110615
  16. METHOTREXATE. [Concomitant]
     Active Substance: METHOTREXATE
     Dosage: 7.5 MG, WEEKLY (3X2.5MG TABLETS WEEKLY)
     Route: 048
     Dates: start: 20110615
  17. SPIRONOLACTONE. [Concomitant]
     Active Substance: SPIRONOLACTONE
     Dosage: 50 MG, UNK
     Route: 048
     Dates: start: 20141113
  18. DILTIAZEM HCL [Concomitant]
     Active Substance: DILTIAZEM HYDROCHLORIDE
     Dosage: 60 MG, 2X/DAY
     Route: 048
     Dates: start: 20141113
  19. CITRACAL + D [Concomitant]
     Active Substance: CALCIUM CITRATE\VITAMIN D
     Dosage: UNK
     Route: 048
     Dates: start: 20111219
  20. DILTIAZEM HCL [Concomitant]
     Active Substance: DILTIAZEM HYDROCHLORIDE
     Dosage: 180 MG, 1X/DAY
     Route: 048
     Dates: start: 20110615
  21. KLOR-CON [Concomitant]
     Active Substance: POTASSIUM CHLORIDE
     Dosage: 25 MEQ, UNK
     Route: 048
     Dates: start: 20111028
  22. CLOBETASOL PROPIONATE E [Concomitant]
     Dosage: 0.05 %, 2X/DAY (APPLY TWICE A DAY FOR UP TO TWO WEEKS)
     Dates: start: 20160811

REACTIONS (13)
  - Product dose omission [Not Recovered/Not Resolved]
  - Nasopharyngitis [Unknown]
  - Rhinorrhoea [Unknown]
  - Oral pain [Unknown]
  - Pain in jaw [Not Recovered/Not Resolved]
  - Condition aggravated [Not Recovered/Not Resolved]
  - Haemoptysis [Unknown]
  - Dyspnoea [Not Recovered/Not Resolved]
  - Osteoarthritis [Unknown]
  - Cough [Unknown]
  - Sneezing [Unknown]
  - Condition aggravated [Not Recovered/Not Resolved]
  - Sputum discoloured [Unknown]

NARRATIVE: CASE EVENT DATE: 20190530
